FAERS Safety Report 5354071-9 (Version None)
Quarter: 2007Q2

REPORT INFORMATION
  Report Type: 
  Country: None (occurrence: None)
  Receive Date: 20070612
  Receipt Date: 20070607
  Transmission Date: 20071010
  Serious: Yes (Other)
  Sender: FDA-Public Use
  Company Number: A0654912A

PATIENT
  Sex: Female

DRUGS (8)
  1. AVANDIA [Suspect]
     Indication: DRUG USE FOR UNKNOWN INDICATION
     Dosage: 4MG PER DAY
  2. ASPIRIN [Concomitant]
     Dosage: 80MG PER DAY
  3. ATACAND [Concomitant]
  4. GLYBURIDE [Concomitant]
     Dosage: 10MG PER DAY
  5. LIPITOR [Concomitant]
     Dosage: 40MG PER DAY
  6. LOPRESSOR [Concomitant]
  7. METFORMIN HCL [Concomitant]
     Dosage: 500MG UNKNOWN
  8. NORVASC [Concomitant]
     Dosage: 10MG PER DAY

REACTIONS (3)
  - BACK PAIN [None]
  - MYOCARDIAL INFARCTION [None]
  - OEDEMA [None]
